FAERS Safety Report 12927179 (Version 1)
Quarter: 2016Q4

REPORT INFORMATION
  Report Type: Spontaneous
  Country: US (occurrence: US)
  Receive Date: 20161109
  Receipt Date: 20161109
  Transmission Date: 20170207
  Serious: No
  Sender: FDA-Public Use
  Company Number: None

PATIENT
  Age: 54 Year
  Sex: Female
  Weight: 111.2 kg

DRUGS (1)
  1. WARFARIN [Suspect]
     Active Substance: WARFARIN
     Route: 048
     Dates: start: 19980730, end: 20160504

REACTIONS (5)
  - Vision blurred [None]
  - Confusional state [None]
  - Haemorrhage [None]
  - Haemorrhage intracranial [None]
  - Headache [None]

NARRATIVE: CASE EVENT DATE: 20160504
